FAERS Safety Report 8209670-3 (Version None)
Quarter: 2012Q1

REPORT INFORMATION
  Report Type: 
  Country: None (occurrence: None)
  Receive Date: 20120314
  Receipt Date: 20120312
  Transmission Date: 20120608
  Serious: Yes (Hospitalization, Other)
  Sender: FDA-Public Use
  Company Number: US-PFIZER INC-2011213904

PATIENT
  Sex: Female
  Weight: 70.748 kg

DRUGS (6)
  1. AMBIEN [Concomitant]
     Indication: INSOMNIA
     Dosage: UNK
  2. DEPAKOTE [Concomitant]
     Indication: CONVULSION
     Dosage: UNK
  3. GEODON [Suspect]
     Indication: BIPOLAR DISORDER
     Dosage: 60 MG, 1X/DAY
     Route: 048
  4. CELEXA [Suspect]
     Dosage: UNK
  5. VISTARIL [Suspect]
     Dosage: UNK
  6. CELEXA [Concomitant]
     Indication: DEPRESSION
     Dosage: UNK

REACTIONS (3)
  - SUICIDE ATTEMPT [None]
  - EMOTIONAL DISORDER [None]
  - SOMNOLENCE [None]
